FAERS Safety Report 6900394-9 (Version None)
Quarter: 2010Q3

REPORT INFORMATION
  Report Type: 
  Country: None (occurrence: None)
  Receive Date: 20100803
  Receipt Date: 20100726
  Transmission Date: 20110219
  Serious: Yes (Other)
  Sender: FDA-Public Use
  Company Number: PHHO2010JP10691

PATIENT

DRUGS (4)
  1. TASIGNA [Suspect]
     Indication: GASTROINTESTINAL STROMAL TUMOUR
     Dosage: 400 MG, BID
     Route: 048
     Dates: start: 20090519
  2. ALFAROL [Concomitant]
  3. MYTEAR [Concomitant]
  4. BIOFERMIN [Concomitant]

REACTIONS (2)
  - LIP AND/OR ORAL CAVITY CANCER [None]
  - NEOPLASM MALIGNANT [None]
